FAERS Safety Report 6816258-5 (Version None)
Quarter: 2010Q2

REPORT INFORMATION
  Report Type: 
  Country: None (occurrence: None)
  Receive Date: 20100630
  Receipt Date: 20100615
  Transmission Date: 20101027
  Serious: Yes (Other)
  Sender: FDA-Public Use
  Company Number: 010979

PATIENT
  Sex: Female

DRUGS (3)
  1. CIMZIA [Suspect]
     Indication: CROHN'S DISEASE
     Dosage: 400 MG 1X/3 WEEKS SUBCUTANEOUS
     Route: 058
     Dates: start: 20081201, end: 20100422
  2. ERGOCALCIFEROL [Concomitant]
  3. AMBIEN [Concomitant]

REACTIONS (1)
  - PSORIASIS [None]
